FAERS Safety Report 6876182-9 (Version None)
Quarter: 2010Q3

REPORT INFORMATION
  Report Type: 
  Country: None (occurrence: None)
  Receive Date: 20100727
  Receipt Date: 20100720
  Transmission Date: 20110219
  Serious: Yes (Other)
  Sender: FDA-Public Use
  Company Number: A0865593A

PATIENT
  Age: 52 Year
  Sex: Female

DRUGS (1)
  1. VENTOLIN HFA [Suspect]
     Indication: PRODUCT USED FOR UNKNOWN INDICATION

REACTIONS (11)
  - APPARENT DEATH [None]
  - COUGH [None]
  - DYSPHONIA [None]
  - DYSPNOEA [None]
  - EYE HAEMORRHAGE [None]
  - FOREIGN BODY [None]
  - PHARYNGEAL INFLAMMATION [None]
  - PRODUCT QUALITY ISSUE [None]
  - SPEECH DISORDER [None]
  - VOCAL CORD INFLAMMATION [None]
  - VOMITING [None]
